FAERS Safety Report 7283222-4 (Version None)
Quarter: 2011Q1

REPORT INFORMATION
  Report Type: 
  Country: None (occurrence: None)
  Receive Date: 20110209
  Receipt Date: 20110127
  Transmission Date: 20110831
  Serious: Yes (Other)
  Sender: FDA-Public Use
  Company Number: PHHY2010FI45530

PATIENT
  Age: 37 Year
  Sex: Male

DRUGS (4)
  1. LEPONEX [Suspect]
     Indication: SCHIZOPHRENIA, PARANOID TYPE
     Dosage: 100 MG, QD
     Dates: start: 20090414
  2. BISOPROLOL [Concomitant]
     Indication: HEART RATE IRREGULAR
     Dosage: 5 MG, QD
  3. NEXIUM [Concomitant]
     Indication: DYSPEPSIA
     Dosage: 20 MG, QD
  4. SIMVASTATIN [Concomitant]
     Indication: HYPERLIPIDAEMIA
     Dosage: 20 MG, QD

REACTIONS (2)
  - BUNDLE BRANCH BLOCK LEFT [None]
  - PALPITATIONS [None]
